FAERS Safety Report 8816654 (Version 1)
Quarter: 2012Q4

REPORT INFORMATION
  Report Type: Spontaneous
  Country: JP (occurrence: None)
  Receive Date: 20120928
  Receipt Date: 20120928
  Transmission Date: 20130627
  Serious: Yes (Death, Other)
  Sender: FDA-Public Use
  Company Number: DSA_59806_2012

PATIENT

DRUGS (6)
  1. FLUOROURACIL (FLUOROURACIL) [Suspect]
     Indication: GASTRIC CANCER
     Dosage: 600 mg/m2 part of cycle 2, administered on days 1, 8 and 15 of 28 day cycle, dose level 2 intravenous bolus)
  2. PACLITAXEL [Suspect]
     Dosage: 80 mg/m2 60 minute, part of cycle 2, administered on days 1, 8, and 15 of 28 day cycle, dose level 2 Intravenous (not otherwise specified))
  3. LEUCOVORIN [Suspect]
     Dosage: 250 mg/m2; part of cycle 2, administered on days 1, 8, and 15 of 28 day cycle, dose level 2 Intravenous (not otherwise specified))
  4. DEXAMETHASONE [Concomitant]
  5. RANITIDINE [Concomitant]
  6. CHLORPHENIRAMINE /00072501/ [Concomitant]

REACTIONS (2)
  - Febrile neutropenia [None]
  - Pneumonia [None]
